FAERS Safety Report 7138830-8 (Version None)
Quarter: 2010Q4

REPORT INFORMATION
  Report Type: 
  Country: None (occurrence: None)
  Receive Date: 20101206
  Receipt Date: 20101130
  Transmission Date: 20110411
  Serious: Yes (Other)
  Sender: FDA-Public Use
  Company Number: DE-TEVA-252129ISR

PATIENT
  Sex: Female

DRUGS (3)
  1. COPAXONE [Suspect]
     Indication: MULTIPLE SCLEROSIS
     Route: 058
     Dates: start: 20081208
  2. LEVOTHYROXINE SODIUM [Concomitant]
     Route: 048
     Dates: start: 20071001
  3. CONTRACEPTIVES NOS [Concomitant]
     Indication: CONTRACEPTION

REACTIONS (2)
  - CHRONIC LYMPHOCYTIC LEUKAEMIA [None]
  - LYMPHOCYTE COUNT INCREASED [None]
